FAERS Safety Report 20224653 (Version 1)
Quarter: 2021Q4

REPORT INFORMATION
  Report Type: Spontaneous
  Country: IR (occurrence: IR)
  Receive Date: 20211223
  Receipt Date: 20211223
  Transmission Date: 20220303
  Serious: Yes (Other)
  Sender: FDA-Public Use
  Company Number: IR-GILEAD-2021-0562632

PATIENT
  Age: 62 Year
  Sex: Female

DRUGS (3)
  1. VIREAD [Suspect]
     Active Substance: TENOFOVIR DISOPROXIL FUMARATE
     Indication: Chronic hepatitis B
     Dosage: 300 MG, QD
     Route: 065
     Dates: start: 2005
  2. INSULIN ASPART [Concomitant]
     Active Substance: INSULIN ASPART
  3. INSULIN GLARGINE [Concomitant]
     Active Substance: INSULIN GLARGINE

REACTIONS (2)
  - Multiple fractures [Recovering/Resolving]
  - Fanconi syndrome acquired [Recovering/Resolving]

NARRATIVE: CASE EVENT DATE: 20160101
